FAERS Safety Report 9775738 (Version 1)
Quarter: 2013Q4

REPORT INFORMATION
  Report Type: Spontaneous
  Country: US (occurrence: US)
  Receive Date: 20131220
  Receipt Date: 20131220
  Transmission Date: 20140711
  Serious: Yes (Death)
  Sender: FDA-Public Use
  Company Number: US-OTSUKA-US-2013-12375

PATIENT
  Sex: Female

DRUGS (2)
  1. ABILIFY MAINTENA [Suspect]
     Indication: SCHIZOPHRENIA
     Dosage: 400 MG MILLIGRAM(S), UNK
     Route: 030
     Dates: start: 2013, end: 201312
  2. MORPHINE SULFATE [Suspect]
     Indication: PRODUCT USED FOR UNKNOWN INDICATION
     Dosage: UNK
     Dates: start: 201312, end: 201312

REACTIONS (2)
  - Overdose [Fatal]
  - Weight decreased [Unknown]
